FAERS Safety Report 5546314-3 (Version None)
Quarter: 2007Q4

REPORT INFORMATION
  Report Type: 
  Country: None (occurrence: None)
  Receive Date: 20071211
  Receipt Date: 20071203
  Transmission Date: 20080405
  Serious: No
  Sender: FDA-Public Use
  Company Number: DE-BRISTOL-MYERS SQUIBB COMPANY-13953443

PATIENT
  Age: 53 Year
  Sex: Female
  Weight: 80 kg

DRUGS (7)
  1. ORENCIA [Suspect]
     Indication: RHEUMATOID ARTHRITIS
     Route: 042
     Dates: start: 20070924, end: 20071017
  2. ARAVA [Concomitant]
     Dates: start: 20060401
  3. MTX [Concomitant]
     Dates: start: 20050101
  4. SULFASALAZINE [Concomitant]
     Dates: start: 20070901
  5. PREDNISOLONE [Concomitant]
  6. HUMIRA [Concomitant]
     Dosage: 1 DOSAGE FORM = 1 INJECTION
     Dates: end: 20070903
  7. VALORON [Concomitant]

REACTIONS (1)
  - HEPATIC ENZYME INCREASED [None]
